FAERS Safety Report 17543685 (Version 1)
Quarter: 2020Q1

REPORT INFORMATION
  Report Type: Report from Study
  Country: DE (occurrence: DE)
  Receive Date: 20200316
  Receipt Date: 20200316
  Transmission Date: 20200409
  Serious: Yes (Other)
  Sender: FDA-Public Use
  Company Number: DE-JNJFOC-20200308333

PATIENT

DRUGS (2)
  1. PIRITRAMIDE [Suspect]
     Active Substance: PIRITRAMIDE
     Indication: ANALGESIC THERAPY
     Route: 042
  2. IBUPROFEN. [Suspect]
     Active Substance: IBUPROFEN
     Indication: ANALGESIC THERAPY
     Route: 065

REACTIONS (5)
  - Post procedural haemorrhage [Unknown]
  - Drug dependence [Unknown]
  - Fatigue [Unknown]
  - Mobility decreased [Unknown]
  - Pain [Unknown]
